FAERS Safety Report 12550649 (Version 1)
Quarter: 2016Q3

REPORT INFORMATION
  Report Type: Other
  Country: None (occurrence: US)
  Receive Date: 20160712
  Receipt Date: 20160712
  Transmission Date: 20161109
  Serious: Yes (Hospitalization, Other)
  Sender: FDA-Public Use
  Company Number: US-GUTHY-RENKER LLC-1054982

PATIENT
  Age: 59 Year
  Sex: Female

DRUGS (2)
  1. MULTIPLE UNDISCLOSED MEDICATIONS [Concomitant]
  2. MEANINGFUL BEAUTY CINDY CRAWFORD ANTIOXIDANT SPF 20 UVA/UVB [Suspect]
     Active Substance: AVOBENZONE\OCTINOXATE\OCTISALATE\OXYBENZONE
     Indication: PHOTOSENSITIVITY REACTION
     Route: 061
     Dates: start: 20160502, end: 20160518

REACTIONS (3)
  - Application site bruise [None]
  - Swelling face [None]
  - Application site burn [None]

NARRATIVE: CASE EVENT DATE: 20160629
